FAERS Safety Report 11757995 (Version 1)
Quarter: 2015Q4

REPORT INFORMATION
  Report Type: Spontaneous
  Country: US (occurrence: None)
  Receive Date: 20151119
  Receipt Date: 20151119
  Transmission Date: 20160304
  Serious: Yes (Life-Threatening)
  Sender: FDA-Public Use
  Company Number: None

PATIENT
  Age: 5 Year
  Sex: Male
  Weight: 17.8 kg

DRUGS (1)
  1. ONCASPAR [Suspect]
     Active Substance: PEGASPARGASE
     Indication: ACUTE LYMPHOCYTIC LEUKAEMIA
     Dates: start: 20151114, end: 20151115

REACTIONS (5)
  - Cardiac arrest [None]
  - Abdominal pain [None]
  - Loss of consciousness [None]
  - Wheezing [None]
  - Ejection fraction decreased [None]

NARRATIVE: CASE EVENT DATE: 20151114
